FAERS Safety Report 5124739-8 (Version None)
Quarter: 2006Q4

REPORT INFORMATION
  Report Type: 
  Country: None (occurrence: None)
  Receive Date: 20061006
  Receipt Date: 20060921
  Transmission Date: 20070319
  Serious: Yes (Death)
  Sender: FDA-Public Use
  Company Number: 2006-143241-NL

PATIENT
  Age: 93 Year
  Sex: Female

DRUGS (4)
  1. DANAPAROID SODIUM [Suspect]
     Indication: DISSEMINATED INTRAVASCULAR COAGULATION
     Dosage: NI; INTRAVENOUS (NOS)
     Route: 041
     Dates: start: 20051011, end: 20051019
  2. PIPERACILLIN SODIUM [Concomitant]
  3. AZTREONAM [Concomitant]
  4. ANTITHROMBIN III [Concomitant]

REACTIONS (3)
  - CONCOMITANT DISEASE AGGRAVATED [None]
  - HAEMOGLOBIN DECREASED [None]
  - HAEMORRHAGE [None]
